FAERS Safety Report 21481773 (Version 1)
Quarter: 2022Q4

REPORT INFORMATION
  Report Type: Report from Study
  Country: CA (occurrence: CA)
  Receive Date: 20221020
  Receipt Date: 20221020
  Transmission Date: 20230112
  Serious: Yes (Hospitalization)
  Sender: FDA-Public Use
  Company Number: CA-ABBVIE-22K-028-4448298-00

PATIENT
  Age: 68 Year
  Sex: Male

DRUGS (3)
  1. SKYRIZI [Suspect]
     Active Substance: RISANKIZUMAB-RZAA
     Indication: Psoriasis
     Dosage: STRENGTH 75 MILLIGRAM
     Route: 058
     Dates: start: 20220304
  2. SKYRIZI [Suspect]
     Active Substance: RISANKIZUMAB-RZAA
     Route: 058
  3. CORTISONE [Concomitant]
     Active Substance: CORTISONE
     Indication: Product used for unknown indication

REACTIONS (14)
  - Hypotension [Unknown]
  - Drug ineffective [Unknown]
  - Pruritus [Unknown]
  - Rash macular [Unknown]
  - Skin plaque [Not Recovered/Not Resolved]
  - Skin discolouration [Unknown]
  - Skin haemorrhage [Unknown]
  - Skin abrasion [Unknown]
  - Skin atrophy [Unknown]
  - Skin exfoliation [Unknown]
  - Psoriasis [Not Recovered/Not Resolved]
  - Fall [Unknown]
  - Dehydration [Unknown]
  - Dizziness [Unknown]

NARRATIVE: CASE EVENT DATE: 20221014
